FAERS Safety Report 4396816-0 (Version None)
Quarter: 2004Q3

REPORT INFORMATION
  Report Type: 
  Country: None (occurrence: None)
  Receive Date: 20040709
  Receipt Date: 20040624
  Transmission Date: 20050211
  Serious: Yes (Death)
  Sender: FDA-Public Use
  Company Number: 430004M04DEU

PATIENT
  Age: 49 Year
  Sex: Female

DRUGS (4)
  1. NOVANTRONE [Suspect]
     Indication: MULTIPLE SCLEROSIS
     Dosage: 12 MG/M2, 1 IN 3 MONTHS
     Dates: start: 20031001, end: 20040423
  2. METOPROLOL SUCCINATE [Concomitant]
  3. THIAMAZOLE [Concomitant]
  4. ONDANSETRON HCL [Concomitant]

REACTIONS (4)
  - CHEST X-RAY ABNORMAL [None]
  - HAEMOGLOBIN DECREASED [None]
  - PROGRESSIVE MULTIPLE SCLEROSIS [None]
  - WHITE BLOOD CELL COUNT ABNORMAL [None]
